FAERS Safety Report 20582738 (Version 1)
Quarter: 2022Q1

REPORT INFORMATION
  Report Type: Spontaneous
  Country: CH (occurrence: CH)
  Receive Date: 20220311
  Receipt Date: 20220311
  Transmission Date: 20220423
  Serious: Yes (Hospitalization, Other)
  Sender: FDA-Public Use
  Company Number: None

PATIENT
  Age: 84 Year
  Sex: Female
  Weight: 56 kg

DRUGS (8)
  1. IRINOTECAN [Suspect]
     Active Substance: IRINOTECAN
     Indication: Colon cancer
     Dosage: 132 MG 1ST CYCLE
     Route: 042
     Dates: start: 20210428
  2. IRINOTECAN [Suspect]
     Active Substance: IRINOTECAN
     Dosage: 132 MG 2ND CYCLE
     Route: 042
     Dates: start: 20210512
  3. FLUOROURACIL [Suspect]
     Active Substance: FLUOROURACIL
     Indication: Colon cancer
     Dosage: 2500 MG 1ST CYCLE
     Route: 042
     Dates: start: 20210428
  4. FLUOROURACIL [Suspect]
     Active Substance: FLUOROURACIL
     Dosage: 2500 MG 2ND CYCLE
     Route: 042
     Dates: start: 20210512
  5. ZALTRAP [Suspect]
     Active Substance: ZIV-AFLIBERCEPT
     Indication: Colon cancer
     Dosage: 228 MG 1ST CYCLE
     Route: 042
     Dates: start: 20210428
  6. ZALTRAP [Suspect]
     Active Substance: ZIV-AFLIBERCEPT
     Dosage: 228 MG 2ND CYCLE
     Route: 042
     Dates: start: 20210512
  7. ASPIRIN [Concomitant]
     Active Substance: ASPIRIN
  8. ENALAPRIL [Concomitant]
     Active Substance: ENALAPRIL

REACTIONS (2)
  - Neutropenic colitis [Recovered/Resolved]
  - Haemoglobin decreased [Unknown]

NARRATIVE: CASE EVENT DATE: 20210519
